FAERS Safety Report 13853253 (Version 4)
Quarter: 2017Q4

REPORT INFORMATION
  Report Type: Spontaneous
  Country: JP (occurrence: JP)
  Receive Date: 20170809
  Receipt Date: 20171006
  Transmission Date: 20180320
  Serious: Yes (Other)
  Sender: FDA-Public Use
  Company Number: JP-CELGENEUS-JPN-20170709152

PATIENT
  Age: 78 Year
  Sex: Male

DRUGS (7)
  1. OTEZLA [Suspect]
     Active Substance: APREMILAST
     Indication: PSORIASIS
     Dosage: 60 MILLIGRAM
     Route: 048
     Dates: start: 20170511, end: 20170723
  2. NEORAL [Concomitant]
     Active Substance: CYCLOSPORINE
     Dosage: DOSE DECREASED
     Route: 065
     Dates: start: 20170803
  3. ANTEBATE [Concomitant]
     Active Substance: BETAMETHASONE DIPROPIONATE
     Indication: PSORIASIS
     Route: 065
  4. METHYCOBAL [Concomitant]
     Active Substance: METHYLCOBALAMIN
     Indication: PSORIASIS
     Dosage: 1500 MILLIGRAM
     Route: 048
     Dates: start: 20100120
  5. NEORAL [Concomitant]
     Active Substance: CYCLOSPORINE
     Indication: PSORIASIS
     Route: 065
  6. NEORAL [Concomitant]
     Active Substance: CYCLOSPORINE
     Dosage: 125 MILLIGRAM
     Route: 065
     Dates: start: 20170721
  7. OXAROL [Concomitant]
     Active Substance: MAXACALCITOL
     Indication: PSORIASIS
     Route: 065

REACTIONS (1)
  - Erythema multiforme [Recovered/Resolved]

NARRATIVE: CASE EVENT DATE: 20170718
